FAERS Safety Report 11258473 (Version 1)
Quarter: 2015Q3

REPORT INFORMATION
  Report Type: Spontaneous
  Country: IT (occurrence: None)
  Receive Date: 20150708
  Receipt Date: 20150708
  Transmission Date: 20151125
  Serious: Yes (Hospitalization)
  Sender: FDA-Public Use
  Company Number: CO-PL-IT-2015-120

PATIENT
  Age: 65 Year
  Sex: Female

DRUGS (1)
  1. PLAQUENIL [Suspect]
     Active Substance: HYDROXYCHLOROQUINE SULFATE
     Indication: PRODUCT USED FOR UNKNOWN INDICATION
     Dosage: 2 DOSAGE FORMS, ORAL
     Route: 048
     Dates: start: 20141023, end: 20141023

REACTIONS (2)
  - Incorrect dose administered [None]
  - Vertigo [None]

NARRATIVE: CASE EVENT DATE: 20141023
